FAERS Safety Report 4933783-2 (Version None)
Quarter: 2006Q1

REPORT INFORMATION
  Report Type: 
  Country: None (occurrence: None)
  Receive Date: 20060306
  Receipt Date: 20051109
  Transmission Date: 20060701
  Serious: Yes (Hospitalization, Disabling)
  Sender: FDA-Public Use
  Company Number: US-MERCK-0511USA01885

PATIENT
  Age: 60 Year
  Sex: Female
  Weight: 84 kg

DRUGS (2)
  1. VIOXX [Suspect]
     Indication: LIGAMENT INJURY
     Route: 048
     Dates: start: 20011201, end: 20040901
  2. TYLENOL (CAPLET) [Concomitant]
     Route: 048

REACTIONS (4)
  - ANXIETY [None]
  - BACK INJURY [None]
  - DEEP VEIN THROMBOSIS [None]
  - THROMBOSIS [None]
